FAERS Safety Report 6385993-8 (Version None)
Quarter: 2009Q4

REPORT INFORMATION
  Report Type: 
  Country: None (occurrence: None)
  Receive Date: 20091002
  Receipt Date: 20081111
  Transmission Date: 20100525
  Serious: No
  Sender: FDA-Public Use
  Company Number: US-ASTRAZENECA-2008UW25229

PATIENT
  Age: 48 Year
  Sex: Female
  Weight: 68 kg

DRUGS (8)
  1. ARIMIDEX [Suspect]
     Indication: BREAST CANCER
     Route: 048
     Dates: start: 20081104
  2. LEXAPRO [Concomitant]
  3. TOPAMAX [Concomitant]
  4. XANAX [Concomitant]
  5. TRAZODONE HCL [Concomitant]
  6. NEXIUM [Concomitant]
     Route: 048
  7. CALCIUM [Concomitant]
  8. VITAMIN D [Concomitant]

REACTIONS (2)
  - ARTHRALGIA [None]
  - NIGHTMARE [None]
